FAERS Safety Report 17669722 (Version 1)
Quarter: 2020Q2

REPORT INFORMATION
  Report Type: Spontaneous
  Country: US (occurrence: US)
  Receive Date: 20200415
  Receipt Date: 20200415
  Transmission Date: 20200713
  Serious: Yes (Life-Threatening, Hospitalization, Other)
  Sender: FDA-Public Use
  Company Number: US-MYLANLABS-2020M1038108

PATIENT
  Age: 57 Year
  Sex: Female

DRUGS (1)
  1. VERAPAMIL [Suspect]
     Active Substance: VERAPAMIL HYDROCHLORIDE
     Indication: PRODUCT USED FOR UNKNOWN INDICATION
     Dosage: 8.5 GRAM
     Route: 065

REACTIONS (8)
  - Cardiac failure high output [Recovering/Resolving]
  - Atrioventricular block complete [Recovering/Resolving]
  - Mitral valve incompetence [Recovering/Resolving]
  - Intentional overdose [Recovering/Resolving]
  - Vasoplegia syndrome [Recovering/Resolving]
  - Left ventricle outflow tract obstruction [Recovering/Resolving]
  - Distributive shock [Recovering/Resolving]
  - Cardiac septal hypertrophy [Recovering/Resolving]
